FAERS Safety Report 18858204 (Version 1)
Quarter: 2021Q1

REPORT INFORMATION
  Report Type: Spontaneous
  Country: BR (occurrence: BR)
  Receive Date: 20210208
  Receipt Date: 20210208
  Transmission Date: 20210420
  Serious: Yes (Death, Hospitalization, Other)
  Sender: FDA-Public Use
  Company Number: BR-UCBSA-2021005396

PATIENT

DRUGS (1)
  1. CERTOLIZUMAB PEGOL [Suspect]
     Active Substance: CERTOLIZUMAB PEGOL
     Indication: PRODUCT USED FOR UNKNOWN INDICATION
     Dosage: UNK

REACTIONS (22)
  - Acute myocardial infarction [Unknown]
  - Mitral valve stenosis [Unknown]
  - Cerebrovascular accident [Unknown]
  - Essential hypertension [Unknown]
  - Cardiac failure congestive [Unknown]
  - Atrial fibrillation [Unknown]
  - Cerebral haemorrhage [Unknown]
  - Aneurysm [Unknown]
  - Death [Fatal]
  - Atrial flutter [Unknown]
  - Cardiac failure [Unknown]
  - Thrombophlebitis [Unknown]
  - Arrhythmia [Unknown]
  - Subarachnoid haemorrhage [Unknown]
  - Hypertensive heart disease [Unknown]
  - Endocarditis rheumatic [Unknown]
  - Angina pectoris [Unknown]
  - Varicose vein [Unknown]
  - Dyspepsia [Unknown]
  - Arteriosclerosis [Unknown]
  - Cardiac arrest [Unknown]
  - Cardiovascular disorder [Unknown]
